FAERS Safety Report 8170090-1 (Version None)
Quarter: 2012Q1

REPORT INFORMATION
  Report Type: 
  Country: None (occurrence: None)
  Receive Date: 20120228
  Receipt Date: 20120224
  Transmission Date: 20120608
  Serious: Yes (Life-Threatening, Hospitalization, Other)
  Sender: FDA-Public Use
  Company Number: GB-PFIZER INC-2012050587

PATIENT
  Age: 73 Year
  Sex: Female
  Weight: 98 kg

DRUGS (17)
  1. WARFARIN [Suspect]
     Indication: PULMONARY EMBOLISM
     Dosage: 10 MG, UNK
     Route: 048
     Dates: start: 20120203, end: 20120205
  2. ISOSORBIDE MONONITRATE [Concomitant]
     Dosage: 60 MG, 1X/DAY
     Route: 048
  3. ROSUVASTATIN [Concomitant]
     Dosage: 10 MG, 1X/DAY
     Route: 048
  4. ACETYLSALICYLIC ACID [Concomitant]
     Dosage: 75 MG, 1X/DAY
     Route: 048
  5. ENOXAPARIN [Concomitant]
     Dosage: 150 MG, 1X/DAY
     Route: 058
  6. FUROSEMIDE [Concomitant]
     Dosage: 40 MG, 1X/DAY
     Route: 048
  7. NOVORAPID [Concomitant]
     Dosage: 220 IU, 3X/DAY
  8. FLUTICASONE PROPIONATE/SALMETEROL [Concomitant]
     Dosage: 2 DF, 2X/DAY
     Route: 055
  9. INSULIN DETEMIR [Concomitant]
     Dosage: 34 IU, 2X/DAY
  10. RAMIPRIL [Concomitant]
     Dosage: 10 MG, 1X/DAY
     Route: 048
  11. SALBUTAMOL [Concomitant]
     Dosage: 2 DF, 4X/DAY
     Route: 055
  12. TRAMADOL [Concomitant]
     Dosage: 400 MG, 1X/DAY
     Route: 048
  13. ALENDRONATE SODIUM [Concomitant]
     Dosage: 70 MG, WEEKLY ONCE PER WEEK
     Route: 048
  14. LEVOTHYROXINE [Concomitant]
     Dosage: 200 UG, 1X/DAY
     Route: 048
  15. PIPERACILLIN AND TAZOBACTAM [Suspect]
     Indication: PNEUMONIA
     Dosage: 4.5 G, UNK
     Route: 042
     Dates: start: 20120202, end: 20120206
  16. DILTIAZEM [Concomitant]
     Dosage: 200 MG, 1X/DAY
     Route: 048
  17. PARACETAMOL [Concomitant]
     Dosage: 1 G, 4X/DAY
     Route: 048

REACTIONS (1)
  - INTERNATIONAL NORMALISED RATIO INCREASED [None]
